FAERS Safety Report 23146588 (Version 1)
Quarter: 2023Q4

REPORT INFORMATION
  Report Type: Spontaneous
  Country: BE (occurrence: BE)
  Receive Date: 20231105
  Receipt Date: 20231105
  Transmission Date: 20240110
  Serious: Yes (Hospitalization, Other)
  Sender: FDA-Public Use
  Company Number: BE-EPICPHARMA-BE-2023EPCLIT01718

PATIENT

DRUGS (3)
  1. CARBOPLATIN [Suspect]
     Active Substance: CARBOPLATIN
     Indication: Hepatoblastoma
     Route: 065
  2. CISPLATIN [Suspect]
     Active Substance: CISPLATIN
     Indication: Hepatoblastoma
     Route: 065
  3. DOXORUBICIN [Suspect]
     Active Substance: DOXORUBICIN
     Indication: Hepatoblastoma
     Route: 065

REACTIONS (2)
  - Chronic kidney disease [Unknown]
  - Drug ineffective for unapproved indication [Unknown]
